FAERS Safety Report 7802038-0 (Version None)
Quarter: 2011Q4

REPORT INFORMATION
  Report Type: 
  Country: None (occurrence: None)
  Receive Date: 20111007
  Receipt Date: 20110928
  Transmission Date: 20120403
  Serious: Yes (Hospitalization)
  Sender: FDA-Public Use
  Company Number: PHFR2011GB05627

PATIENT
  Age: 13 Year
  Sex: Female

DRUGS (2)
  1. EXJADE [Suspect]
     Dosage: 30 MG/KG, DAILY
     Route: 065
  2. EXJADE [Suspect]
     Dosage: 20 MG/KG, DAILY
     Route: 065

REACTIONS (6)
  - VOMITING [None]
  - SERUM FERRITIN INCREASED [None]
  - WEIGHT DECREASED [None]
  - ABDOMINAL PAIN UPPER [None]
  - DECREASED APPETITE [None]
  - NAUSEA [None]
